FAERS Safety Report 7098649-3 (Version None)
Quarter: 2010Q4

REPORT INFORMATION
  Report Type: 
  Country: None (occurrence: None)
  Receive Date: 20101104
  Receipt Date: 20101019
  Transmission Date: 20110411
  Serious: Yes (Disabling)
  Sender: FDA-Public Use
  Company Number: FKO201000477

PATIENT
  Age: 50 Year
  Sex: Female

DRUGS (10)
  1. FLUOROURACIL [Suspect]
     Indication: BREAST CANCER
     Dosage: INTRAVENOUS (NOT OTHERWISE SPECIFIED)
     Route: 042
     Dates: start: 20091120, end: 20100219
  2. CYCLOPHOSPHAMIDE [Suspect]
     Indication: BREAST CANCER
     Dosage: INTRAVENOUS (NOT OTHERWISE SPECIFIED)
     Route: 042
     Dates: start: 20091120, end: 20100219
  3. METHOTREXATE [Suspect]
     Indication: BREAST CANCER
     Dosage: INTRAVENOUS (NOT OTHERWISE SPECIFIED)
     Route: 042
     Dates: start: 20091120, end: 20100219
  4. EPIRUBICIN [Suspect]
     Indication: BREAST CANCER
     Dosage: (192 MG) INTRAVENOUS (NOT OTHERWISE SPECIFIED)
     Route: 042
     Dates: start: 20090828, end: 20091030
  5. APREPITANT (APREPITANT) (APREPITANT) [Concomitant]
  6. CYCLIZINE (CYCLIZINE) (CYCLIZINE) [Concomitant]
  7. DEXAMETHASONE [Concomitant]
  8. LORAZEPAM [Concomitant]
  9. ONDANSETRON [Concomitant]
  10. TAMOXIFEN CITRATE [Concomitant]

REACTIONS (1)
  - DEAFNESS NEUROSENSORY [None]
